FAERS Safety Report 13078387 (Version 2)
Quarter: 2018Q1

REPORT INFORMATION
  Report Type: Report from Study
  Country: CN (occurrence: CN)
  Receive Date: 20170102
  Receipt Date: 20180104
  Transmission Date: 20180508
  Serious: Yes (Hospitalization)
  Sender: FDA-Public Use
  Company Number: CN-JNJFOC-20161226119

PATIENT
  Age: 72 Year
  Sex: Male
  Weight: 76.19 kg

DRUGS (31)
  1. PERINDOPRIL [Concomitant]
     Active Substance: PERINDOPRIL
     Indication: HYPERTENSION
     Route: 048
     Dates: start: 20161111
  2. LIPITOR [Concomitant]
     Active Substance: ATORVASTATIN CALCIUM
     Indication: CAROTID ARTERIOSCLEROSIS
     Route: 048
     Dates: start: 20161120
  3. CORDARONE [Concomitant]
     Active Substance: AMIODARONE HYDROCHLORIDE
     Indication: ATRIAL FIBRILLATION
     Route: 048
     Dates: start: 20161124
  4. HEPARIN SODIUM. [Concomitant]
     Active Substance: HEPARIN SODIUM
     Indication: ARTERIOGRAM CORONARY
     Route: 013
     Dates: start: 20161114, end: 20161114
  5. ISOSORBIDE MONONITRATE. [Concomitant]
     Active Substance: ISOSORBIDE MONONITRATE
     Indication: ATRIAL FIBRILLATION
     Route: 048
     Dates: start: 20161111, end: 20161118
  6. HEPARIN SODIUM. [Concomitant]
     Active Substance: HEPARIN SODIUM
     Indication: ARTERIOGRAM CORONARY
     Route: 065
     Dates: start: 20161114, end: 20161114
  7. GLYCEROL [Concomitant]
     Active Substance: GLYCERIN
     Indication: CONSTIPATION
     Route: 054
     Dates: start: 20161206, end: 20161208
  8. CORDARONE [Concomitant]
     Active Substance: AMIODARONE HYDROCHLORIDE
     Indication: ATRIAL FIBRILLATION
     Route: 048
     Dates: start: 20161122, end: 20161124
  9. HEPARIN SODIUM. [Concomitant]
     Active Substance: HEPARIN SODIUM
     Indication: ARTERIOGRAM CORONARY
     Route: 042
     Dates: start: 20161117, end: 20161117
  10. MEGLUMINE [Concomitant]
     Active Substance: MEGLUMINE
     Indication: ATRIAL FIBRILLATION
     Route: 042
     Dates: start: 20161111, end: 20161120
  11. LIPITOR [Concomitant]
     Active Substance: ATORVASTATIN CALCIUM
     Indication: CAROTID ARTERIOSCLEROSIS
     Route: 048
     Dates: start: 20161222
  12. PANTOPRAZOLE [Concomitant]
     Active Substance: PANTOPRAZOLE
     Indication: ATRIAL FIBRILLATION
     Route: 042
     Dates: start: 20161120
  13. WARFARIN [Concomitant]
     Active Substance: WARFARIN
     Indication: ATRIAL FIBRILLATION
     Route: 048
     Dates: start: 20140709, end: 20161116
  14. DUPHALAC [Concomitant]
     Active Substance: LACTULOSE
     Indication: CONSTIPATION
     Route: 048
     Dates: start: 20161124, end: 20161208
  15. PROPAFENONE. [Concomitant]
     Active Substance: PROPAFENONE
     Indication: ATRIAL FIBRILLATION
     Route: 048
     Dates: start: 20161117
  16. HEPARIN SODIUM. [Concomitant]
     Active Substance: HEPARIN SODIUM
     Indication: ARTERIOGRAM CORONARY
     Route: 013
     Dates: start: 20161114, end: 20161114
  17. RIVAROXABAN [Suspect]
     Active Substance: RIVAROXABAN
     Indication: CEREBROVASCULAR ACCIDENT PROPHYLAXIS
     Route: 048
     Dates: start: 20161119, end: 20170218
  18. RADIX SALVIAE MILTIORRHIZAE [Concomitant]
     Route: 065
     Dates: start: 20161111, end: 20161120
  19. POLYETHYLENE GLYCOL [Concomitant]
     Active Substance: POLYETHYLENE GLYCOLS
     Indication: CONSTIPATION
     Route: 048
     Dates: start: 20161206, end: 20161208
  20. PANTOPRAZOLE [Concomitant]
     Active Substance: PANTOPRAZOLE
     Indication: ATRIAL FIBRILLATION
     Route: 042
     Dates: start: 20161111, end: 20161120
  21. HEPARIN SODIUM. [Concomitant]
     Active Substance: HEPARIN SODIUM
     Indication: ARTERIOGRAM CORONARY
     Route: 042
     Dates: start: 20161117, end: 20161117
  22. POTASSIUM CHLORIDE. [Concomitant]
     Active Substance: POTASSIUM CHLORIDE
     Route: 042
     Dates: start: 20161117, end: 20161117
  23. PHENOLPHTHALEIN [Concomitant]
     Active Substance: PHENOLPHTHALEIN
     Indication: CONSTIPATION
     Route: 048
     Dates: start: 20161206, end: 20161208
  24. HEPARIN SODIUM. [Concomitant]
     Active Substance: HEPARIN SODIUM
     Indication: ARTERIOGRAM CORONARY
     Route: 065
     Dates: start: 20161117, end: 20161117
  25. MIDAZOLAM [Concomitant]
     Active Substance: MIDAZOLAM HYDROCHLORIDE
     Route: 041
     Dates: start: 20161117, end: 20161117
  26. CORDARONE [Concomitant]
     Active Substance: AMIODARONE HYDROCHLORIDE
     Indication: ATRIAL FIBRILLATION
     Route: 048
     Dates: start: 20161117, end: 20161121
  27. CORDARONE [Concomitant]
     Active Substance: AMIODARONE HYDROCHLORIDE
     Indication: ATRIAL FIBRILLATION
     Route: 048
     Dates: start: 20161122, end: 20161122
  28. TRIMETAZIDINE HYDROCHLORIDE [Concomitant]
     Active Substance: TRIMETAZIDINE DIHYDROCHLORIDE
     Indication: ATRIAL FIBRILLATION
     Route: 048
     Dates: start: 20161111
  29. HEPARIN SODIUM. [Concomitant]
     Active Substance: HEPARIN SODIUM
     Indication: ARTERIOGRAM CORONARY
     Route: 013
     Dates: start: 20161114, end: 20161114
  30. LIDOCAINE. [Concomitant]
     Active Substance: LIDOCAINE
     Indication: ARTERIOGRAM CORONARY
     Route: 065
     Dates: start: 20161114, end: 20161114
  31. FENTANYL. [Concomitant]
     Active Substance: FENTANYL
     Route: 041
     Dates: start: 20161117, end: 20161117

REACTIONS (1)
  - Vascular pseudoaneurysm [Recovered/Resolved]

NARRATIVE: CASE EVENT DATE: 20161121
